FAERS Safety Report 7124622-2 (Version None)
Quarter: 2010Q4

REPORT INFORMATION
  Report Type: 
  Country: None (occurrence: None)
  Receive Date: 20101129
  Receipt Date: 20101118
  Transmission Date: 20110411
  Serious: Yes (Other)
  Sender: FDA-Public Use
  Company Number: US-AMGEN-USASP2010005665

PATIENT

DRUGS (2)
  1. NPLATE [Suspect]
     Indication: THROMBOCYTOPENIA
     Dates: start: 20101105
  2. NPLATE [Suspect]
     Dosage: 2 A?G/KG, UNK
     Dates: start: 20101101

REACTIONS (1)
  - HAEMATURIA [None]
